FAERS Safety Report 6462629-9 (Version None)
Quarter: 2009Q4

REPORT INFORMATION
  Report Type: 
  Country: None (occurrence: None)
  Receive Date: 20091130
  Receipt Date: 20091119
  Transmission Date: 20100525
  Serious: Yes (Other)
  Sender: FDA-Public Use
  Company Number: DK-ASTRAZENECA-2009SE23919

PATIENT
  Sex: Female
  Weight: 58 kg

DRUGS (1)
  1. ZOMIG [Suspect]
     Indication: MIGRAINE
     Route: 065
     Dates: start: 20070101, end: 20090101

REACTIONS (1)
  - PRINZMETAL ANGINA [None]
